FAERS Safety Report 19056067 (Version 3)
Quarter: 2021Q2

REPORT INFORMATION
  Report Type: Report from Study
  Country: IT (occurrence: IT)
  Receive Date: 20210324
  Receipt Date: 20210531
  Transmission Date: 20210717
  Serious: Yes (Hospitalization, Other)
  Sender: FDA-Public Use
  Company Number: IT-PFIZER INC-2021287447

PATIENT
  Age: 87 Year
  Sex: Male

DRUGS (8)
  1. MINIAS [Concomitant]
     Active Substance: LORMETAZEPAM
     Dosage: UNK
     Route: 048
  2. BUSCOPAN [Suspect]
     Active Substance: BUTYLSCOPOLAMINE BROMIDE
     Dosage: 10 MG, 1X/DAY
     Route: 048
     Dates: start: 20190201, end: 20210224
  3. LANSOPRAZOLE. [Concomitant]
     Active Substance: LANSOPRAZOLE
     Dosage: UNK
     Route: 048
  4. SOLDESAM [Concomitant]
     Active Substance: DEXAMETHASONE
     Dosage: UNK
     Route: 048
  5. QUESTRAN [Concomitant]
     Active Substance: CHOLESTYRAMINE
     Dosage: UNK
     Route: 048
  6. SERTRALINE HCL [Suspect]
     Active Substance: SERTRALINE HYDROCHLORIDE
     Dosage: 50 MG, 1X/DAY
     Route: 048
  7. CARDIOASPIRIN [Interacting]
     Active Substance: ASPIRIN
     Dosage: 1 DF, 1X/DAY
     Route: 048
     Dates: start: 20190201, end: 20210224
  8. RAMIPRIL. [Concomitant]
     Active Substance: RAMIPRIL
     Dosage: 2.5 MG, 1X/DAY
     Route: 048

REACTIONS (2)
  - Subdural haemorrhage [Not Recovered/Not Resolved]
  - Drug interaction [Unknown]

NARRATIVE: CASE EVENT DATE: 20210223
